FAERS Safety Report 15681914 (Version 7)
Quarter: 2020Q1

REPORT INFORMATION
  Report Type: Report from Study
  Country: TH (occurrence: TH)
  Receive Date: 20181203
  Receipt Date: 20200318
  Transmission Date: 20200409
  Serious: Yes (Hospitalization)
  Sender: FDA-Public Use
  Company Number: PHHO2018TH010694

PATIENT
  Age: 21 Year
  Sex: Female
  Weight: 56.1 kg

DRUGS (3)
  1. DEFERASIROX. [Suspect]
     Active Substance: DEFERASIROX
     Indication: THALASSAEMIA
     Dosage: 1750 MG, QD
     Route: 048
     Dates: start: 20170906, end: 20180228
  2. DEFERASIROX. [Suspect]
     Active Substance: DEFERASIROX
     Dosage: 1440 MG, QD
     Route: 048
     Dates: start: 20180613, end: 20180927
  3. DEFERASIROX. [Suspect]
     Active Substance: DEFERASIROX
     Indication: THALASSAEMIA
     Dosage: 1260 MG, QD
     Route: 048
     Dates: start: 20180301, end: 20180612

REACTIONS (5)
  - Thrombocytopenia [Recovered/Resolved]
  - Hypokalaemia [Recovered/Resolved]
  - Acute kidney injury [Recovered/Resolved]
  - Diarrhoea infectious [Recovered/Resolved]
  - Metabolic acidosis [Recovered/Resolved]

NARRATIVE: CASE EVENT DATE: 20180927
